FAERS Safety Report 6935386-7 (Version None)
Quarter: 2010Q3

REPORT INFORMATION
  Report Type: 
  Country: None (occurrence: None)
  Receive Date: 20100823
  Receipt Date: 20100813
  Transmission Date: 20110219
  Serious: Yes (Other)
  Sender: FDA-Public Use
  Company Number: US-BIOGENIDEC-2010BI019719

PATIENT
  Age: 66 Year
  Sex: Female

DRUGS (1)
  1. AVONEX [Suspect]
     Indication: MULTIPLE SCLEROSIS
     Route: 030
     Dates: start: 20001201

REACTIONS (4)
  - ABDOMINAL WALL CYST [None]
  - CERVIX CARCINOMA STAGE III [None]
  - GASTROINTESTINAL DISORDER [None]
  - RADIATION SICKNESS SYNDROME [None]
